FAERS Safety Report 15279429 (Version 2)
Quarter: 2018Q4

REPORT INFORMATION
  Report Type: Spontaneous
  Country: US (occurrence: US)
  Receive Date: 20180815
  Receipt Date: 20180831
  Transmission Date: 20190204
  Serious: No
  Sender: FDA-Public Use
  Company Number: US-TEVA-2018-US-941333

PATIENT
  Sex: Female

DRUGS (1)
  1. TAMOXTAB-A [Suspect]
     Active Substance: TAMOXIFEN
     Dates: start: 201807

REACTIONS (3)
  - Stomatitis [Unknown]
  - Paraesthesia oral [Unknown]
  - Hypoaesthesia oral [Unknown]

NARRATIVE: CASE EVENT DATE: 2018
